FAERS Safety Report 4455810-1 (Version None)
Quarter: 2004Q3

REPORT INFORMATION
  Report Type: 
  Country: None (occurrence: None)
  Receive Date: 20040917
  Receipt Date: 20040827
  Transmission Date: 20050211
  Serious: Yes (Hospitalization)
  Sender: FDA-Public Use
  Company Number: EWC040840411

PATIENT
  Age: 72 Year
  Sex: Female
  Weight: 85 kg

DRUGS (12)
  1. OLZANZAPINE-ORAL (OLZANAPINE) [Suspect]
     Indication: BIPOLAR DISORDER
     Dosage: 10 MG DAY
  2. OLZANZAPINE-ORAL (OLZANAPINE) [Suspect]
     Indication: DEPRESSION
     Dosage: 10 MG DAY
  3. PAROXETINE HCL [Concomitant]
  4. BELOC ZOK (METORPOLOL SUCCINATE) [Concomitant]
  5. LORAZEPAM [Concomitant]
  6. SEROQUEL [Concomitant]
  7. ELTROXIN (LEVOTHYROXINE SODIUM) [Concomitant]
  8. TOREM (TORASEMIDE SODIUM) [Concomitant]
  9. CO-DIOVAN [Concomitant]
  10. PRAVASTATIN SODIUM [Concomitant]
  11. ALDACTONE [Concomitant]
  12. MARCUMAR [Concomitant]

REACTIONS (6)
  - AGITATION [None]
  - ANTICHOLINERGIC SYNDROME [None]
  - ANTIDEPRESSANT DRUG LEVEL INCREASED [None]
  - CONFUSIONAL STATE [None]
  - MYDRIASIS [None]
  - TACHYCARDIA [None]
